FAERS Safety Report 5700786-X (Version None)
Quarter: 2008Q2

REPORT INFORMATION
  Report Type: 
  Country: None (occurrence: None)
  Receive Date: 20080407
  Receipt Date: 20080324
  Transmission Date: 20081010
  Serious: Yes (Hospitalization)
  Sender: FDA-Public Use
  Company Number: 2008BI001348

PATIENT
  Sex: Female
  Weight: 74.8435 kg

DRUGS (1)
  1. AVONEX [Suspect]
     Indication: MULTIPLE SCLEROSIS
     Dosage: 30 UG; QW; IM
     Route: 030
     Dates: start: 20051028

REACTIONS (9)
  - ABDOMINAL ADHESIONS [None]
  - BLOOD ELECTROLYTES DECREASED [None]
  - BRADYCARDIA [None]
  - DEHYDRATION [None]
  - DIARRHOEA [None]
  - MUSCLE SPASTICITY [None]
  - PAIN [None]
  - PAROTITIS [None]
  - WEIGHT DECREASED [None]
